FAERS Safety Report 20749162 (Version 1)
Quarter: 2022Q2

REPORT INFORMATION
  Report Type: Spontaneous
  Country: US (occurrence: US)
  Receive Date: 20220426
  Receipt Date: 20220426
  Transmission Date: 20220721
  Serious: Yes (Hospitalization)
  Sender: FDA-Public Use
  Company Number: US-HISAMITSU-2022-US-008589

PATIENT
  Age: 82 Year
  Sex: Female
  Weight: 61.24 kg

DRUGS (2)
  1. SALONPAS LIDOCAINE PLUS [Suspect]
     Active Substance: BENZYL ALCOHOL\LIDOCAINE HYDROCHLORIDE
     Indication: Analgesic therapy
     Dosage: APPLIED TO BOTH KNEES AT BEDTIME AND USED ELECTRIC BLANKET
     Route: 061
  2. SALONPAS LIDOCAINE PAIN RELIEVING [Suspect]
     Active Substance: LIDOCAINE
     Indication: Analgesic therapy
     Dosage: APPLIED TO BOTH KNEES AT BEDTIME AND USED WITH ELECTRIC BLANKET
     Route: 061
     Dates: start: 202104

REACTIONS (4)
  - Dizziness [Recovered/Resolved]
  - Flushing [Recovered/Resolved]
  - Influenza [Recovered/Resolved]
  - Intentional product misuse [Recovered/Resolved]

NARRATIVE: CASE EVENT DATE: 20210401
